FAERS Safety Report 10020972 (Version 1)
Quarter: 2014Q1

REPORT INFORMATION
  Report Type: Spontaneous
  Country: US (occurrence: US)
  Receive Date: 20140319
  Receipt Date: 20140319
  Transmission Date: 20141002
  Serious: Yes (Other)
  Sender: FDA-Public Use
  Company Number: US-JNJFOC-20140306530

PATIENT
  Age: 70 Year
  Sex: Female
  Weight: 101.61 kg

DRUGS (9)
  1. XARELTO [Suspect]
     Indication: CEREBROVASCULAR ACCIDENT PROPHYLAXIS
     Route: 048
     Dates: start: 20130917, end: 20131022
  2. XARELTO [Suspect]
     Indication: ATRIAL FIBRILLATION
     Route: 048
     Dates: start: 20130917, end: 20131022
  3. ATENOLOL [Concomitant]
     Indication: PRODUCT USED FOR UNKNOWN INDICATION
     Route: 048
     Dates: start: 20130917
  4. LEVOTHYROXINE SODIUM [Concomitant]
     Route: 048
     Dates: start: 20130917
  5. METFORMIN [Concomitant]
     Route: 048
     Dates: start: 20121130
  6. OMEPRAZOLE [Concomitant]
     Route: 048
     Dates: start: 20130917
  7. PREDNISONE [Concomitant]
     Route: 048
     Dates: start: 20110829
  8. QUININE SULPHATE [Concomitant]
     Dosage: HALF TABLET
     Route: 065
     Dates: start: 20111213
  9. MICARDIS [Concomitant]
     Route: 048
     Dates: start: 20130105, end: 20131030

REACTIONS (15)
  - Cardiac failure congestive [Recovering/Resolving]
  - Hypothyroidism [Unknown]
  - Hypoalbuminaemia [Recovering/Resolving]
  - Leukocytosis [Recovering/Resolving]
  - Thrombocytosis [Recovering/Resolving]
  - Polymyalgia rheumatica [Unknown]
  - Urinary tract infection [Recovering/Resolving]
  - Red blood cell sedimentation rate increased [Recovering/Resolving]
  - Hyperlipidaemia [Unknown]
  - Liver function test abnormal [Recovering/Resolving]
  - Body temperature increased [Recovering/Resolving]
  - Weight decreased [Recovering/Resolving]
  - Muscle spasms [Unknown]
  - Acrochordon [Unknown]
  - Melanocytic naevus [Unknown]
